FAERS Safety Report 10451640 (Version 3)
Quarter: 2014Q4

REPORT INFORMATION
  Report Type: Spontaneous
  Country: IL (occurrence: IL)
  Receive Date: 20140914
  Receipt Date: 20141111
  Transmission Date: 20150528
  Serious: Yes (Hospitalization)
  Sender: FDA-Public Use
  Company Number: IL-BRISTOL-MYERS SQUIBB COMPANY-21376421

PATIENT
  Age: 80 Year
  Sex: Female

DRUGS (6)
  1. DIOVAN [Concomitant]
     Active Substance: VALSARTAN
  2. EZETROL [Concomitant]
     Active Substance: EZETIMIBE
  3. NORVASC [Concomitant]
     Active Substance: AMLODIPINE BESYLATE
  4. CARDILOL [Concomitant]
     Active Substance: CARVEDILOL
  5. BYDUREON [Suspect]
     Active Substance: EXENATIDE
     Indication: TYPE 2 DIABETES MELLITUS
     Dosage: ONGOING(CONTINUED)
     Dates: start: 20140615
  6. AMARYL [Concomitant]
     Active Substance: GLIMEPIRIDE

REACTIONS (2)
  - Hypertensive emergency [Unknown]
  - Injection site nodule [Not Recovered/Not Resolved]

NARRATIVE: CASE EVENT DATE: 201406
